FAERS Safety Report 24443416 (Version 2)
Quarter: 2024Q4

REPORT INFORMATION
  Report Type: Report from Study
  Country: US (occurrence: US)
  Receive Date: 20241016
  Receipt Date: 20241113
  Transmission Date: 20250115
  Serious: Yes (Hospitalization)
  Sender: TAKEDA
  Company Number: US-TAKEDA-2024TUS097315

PATIENT
  Sex: Male
  Weight: 86.803 kg

DRUGS (1)
  1. FRUQUINTINIB [Suspect]
     Active Substance: FRUQUINTINIB
     Indication: Colon cancer
     Dosage: 4 MILLIGRAM, QD
     Dates: start: 20240920

REACTIONS (6)
  - Dehydration [Unknown]
  - Fluid retention [Unknown]
  - Swelling [Unknown]
  - Fatigue [Unknown]
  - Liver disorder [Unknown]
  - Skin fissures [Unknown]
